FAERS Safety Report 9077512 (Version 1)
Quarter: 2013Q1

REPORT INFORMATION
  Report Type: Report from Study
  Country: US (occurrence: US)
  Receive Date: 20130130
  Receipt Date: 20130130
  Transmission Date: 20140127
  Serious: No
  Sender: FDA-Public Use
  Company Number: US-ABBOTT-12P-163-0959103-00

PATIENT
  Age: 40 None
  Sex: Male
  Weight: 95.34 kg

DRUGS (5)
  1. HUMIRA 40 MG/0.8 ML PEN [Suspect]
     Indication: CROHN^S DISEASE
     Dates: start: 20120419
  2. LIPITOR [Suspect]
     Indication: PRODUCT USED FOR UNKNOWN INDICATION
     Dates: end: 201207
  3. BENICAR [Concomitant]
     Indication: PRODUCT USED FOR UNKNOWN INDICATION
  4. DICYCLOMINE [Concomitant]
     Indication: PRODUCT USED FOR UNKNOWN INDICATION
  5. XANTAC [Concomitant]
     Indication: PRODUCT USED FOR UNKNOWN INDICATION

REACTIONS (2)
  - Myalgia [Recovered/Resolved]
  - Arthralgia [Recovered/Resolved]
